FAERS Safety Report 23939849 (Version 5)
Quarter: 2025Q1

REPORT INFORMATION
  Report Type: Spontaneous
  Country: JP (occurrence: JP)
  Receive Date: 20240605
  Receipt Date: 20250328
  Transmission Date: 20250409
  Serious: Yes (Death, Life-Threatening, Hospitalization, Other)
  Sender: GLAXOSMITHKLINE
  Company Number: JP-GSKJP-JP2024JPN068410AA

PATIENT

DRUGS (33)
  1. DAPRODUSTAT [Suspect]
     Active Substance: DAPRODUSTAT
     Indication: Nephrogenic anaemia
     Dosage: 4 MG, 1D
     Route: 048
     Dates: start: 20220616, end: 20220704
  2. DAPRODUSTAT [Suspect]
     Active Substance: DAPRODUSTAT
     Dosage: 2 MG, 1D
     Route: 048
     Dates: start: 20220705, end: 20220708
  3. DAPRODUSTAT [Suspect]
     Active Substance: DAPRODUSTAT
     Dosage: 2 MG, 1D
     Route: 048
     Dates: start: 20220714
  4. DAPRODUSTAT [Suspect]
     Active Substance: DAPRODUSTAT
     Dosage: 4 MG, 1D
     Route: 048
     Dates: start: 20220721
  5. RIVASTIGMINE [Suspect]
     Active Substance: RIVASTIGMINE
     Indication: Dementia Alzheimer^s type
     Dosage: 4.5 MG, 1D
     Dates: start: 20220714, end: 20220912
  6. RIVASTIGMINE [Suspect]
     Active Substance: RIVASTIGMINE
     Dosage: 9.0 MG, 1D
     Dates: start: 20220913, end: 20221011
  7. ASPIRIN [Suspect]
     Active Substance: ASPIRIN
     Indication: Cerebral infarction
     Dosage: 100 MG, 1D
     Dates: start: 20220621
  8. TELMISARTAN [Suspect]
     Active Substance: TELMISARTAN
     Dates: end: 20220715
  9. EDOXABAN [Concomitant]
     Active Substance: EDOXABAN
  10. DONEPEZIL HYDROCHLORIDE [Concomitant]
     Active Substance: DONEPEZIL HYDROCHLORIDE
     Indication: Dementia Alzheimer^s type
     Dosage: 5 MG, 1D
     Dates: end: 20220714
  11. MICARDIS [Concomitant]
     Active Substance: TELMISARTAN
     Indication: Hypertension
     Dosage: 20 MG, 1D
     Dates: end: 20220715
  12. PROPIVERINE HYDROCHLORIDE [Concomitant]
     Active Substance: PROPIVERINE HYDROCHLORIDE
     Indication: Hypertonic bladder
     Dosage: 20 MG, 1D
     Dates: end: 20220614
  13. MAGNESIUM OXIDE [Concomitant]
     Active Substance: MAGNESIUM OXIDE
     Indication: Constipation
     Dosage: 660 MG, BID
     Dates: end: 20220627
  14. KETOPROFEN [Concomitant]
     Active Substance: KETOPROFEN
     Indication: Back pain
     Dosage: 40 MG, 1D
  15. PIRENOXINE [Concomitant]
     Active Substance: PIRENOXINE
     Indication: Cataract
     Dates: end: 20221011
  16. Stickzenol a [Concomitant]
     Indication: Back pain
  17. ACETAMINOPHEN\TRAMADOL HYDROCHLORIDE [Concomitant]
     Active Substance: ACETAMINOPHEN\TRAMADOL HYDROCHLORIDE
     Indication: Pain
     Dosage: 1 DF, QID
     Dates: start: 20220604, end: 20220705
  18. PREGABALIN [Concomitant]
     Active Substance: PREGABALIN
     Indication: Neuralgia
     Dosage: 25 MG, BID
     Dates: start: 20220603, end: 20220708
  19. SODIUM FERROUS CITRATE [Concomitant]
     Active Substance: SODIUM FERROUS CITRATE
     Indication: Iron deficiency anaemia
     Dosage: 100 MG, 1D
     Dates: start: 20220609, end: 20220621
  20. SODIUM FERROUS CITRATE [Concomitant]
     Active Substance: SODIUM FERROUS CITRATE
     Dosage: 100 MG, BID
     Dates: start: 20220622, end: 20220704
  21. SODIUM FERROUS CITRATE [Concomitant]
     Active Substance: SODIUM FERROUS CITRATE
     Dosage: 50 MG, BID
     Dates: start: 20221108, end: 20221112
  22. AMITIZA [Concomitant]
     Active Substance: LUBIPROSTONE
     Indication: Constipation
     Dosage: 12 UG, BID
     Dates: start: 20220705, end: 20221112
  23. CELECOXIB [Concomitant]
     Active Substance: CELECOXIB
     Indication: Pain
     Dosage: 100 MG, BID
     Dates: start: 20220705, end: 20220708
  24. ACETAMINOPHEN [Concomitant]
     Active Substance: ACETAMINOPHEN
     Indication: Pain
     Dosage: 600 MG, TID
     Dates: start: 20220705, end: 20221112
  25. Ferrum [Concomitant]
     Indication: Iron deficiency anaemia
     Dosage: 100 MG, 1D
     Dates: start: 20221012, end: 20221108
  26. Xanbon s [Concomitant]
     Dates: start: 20220619, end: 20220621
  27. DEXTROSE [Concomitant]
     Active Substance: DEXTROSE MONOHYDRATE
     Dates: start: 20220619, end: 20220621
  28. CALCIUM CHLORIDE\POTASSIUM CHLORIDE\SODIUM ACETATE\SODIUM CHLORIDE [Concomitant]
     Active Substance: CALCIUM CHLORIDE\POTASSIUM CHLORIDE\SODIUM ACETATE\SODIUM CHLORIDE
     Dates: start: 20220619, end: 20220619
  29. ISOTONIC SODIUM CHLORIDE SOLUTION [Concomitant]
     Active Substance: SODIUM CHLORIDE
     Dates: start: 20220621, end: 20220621
  30. ISOTONIC SODIUM CHLORIDE SOLUTION [Concomitant]
     Active Substance: SODIUM CHLORIDE
     Dates: start: 20220709, end: 20220711
  31. ACETAMINOPHEN [Concomitant]
     Active Substance: ACETAMINOPHEN
     Dates: start: 20220714, end: 20220714
  32. CALCIUM CHLORIDE\POTASSIUM CHLORIDE\SODIUM CHLORIDE\SODIUM LACTATE\SOR [Concomitant]
     Active Substance: CALCIUM CHLORIDE\POTASSIUM CHLORIDE\SODIUM CHLORIDE\SODIUM LACTATE\SORBITOL
     Dates: start: 20220713, end: 20220714
  33. ISOTONIC SODIUM CHLORIDE SOLUTION [Concomitant]
     Active Substance: SODIUM CHLORIDE
     Dates: start: 20220709, end: 20220711

REACTIONS (33)
  - Deep vein thrombosis [Fatal]
  - Marasmus [Fatal]
  - Cerebral infarction [Recovering/Resolving]
  - Upper gastrointestinal haemorrhage [Recovered/Resolved]
  - Haematochezia [Recovered/Resolved]
  - Pneumonia [Not Recovered/Not Resolved]
  - Pulmonary oedema [Not Recovered/Not Resolved]
  - Lymphoma [Unknown]
  - Arteriosclerosis coronary artery [Not Recovered/Not Resolved]
  - Pancreatic atrophy [Not Recovered/Not Resolved]
  - Depressed level of consciousness [Recovered/Resolved]
  - Monoplegia [Recovered/Resolved]
  - Gallbladder enlargement [Not Recovered/Not Resolved]
  - Faeces discoloured [Recovered/Resolved]
  - Hypophagia [Recovered/Resolved]
  - Malnutrition [Not Recovered/Not Resolved]
  - Peripheral swelling [Fatal]
  - Oedema peripheral [Fatal]
  - Pain [Fatal]
  - Blood pressure decreased [Recovered/Resolved]
  - Dehydration [Not Recovered/Not Resolved]
  - Erythema [Recovered/Resolved]
  - Uterine mass [Not Recovered/Not Resolved]
  - Hydrometra [Not Recovered/Not Resolved]
  - Cholelithiasis [Not Recovered/Not Resolved]
  - Cardiomegaly [Not Recovered/Not Resolved]
  - Pleural effusion [Not Recovered/Not Resolved]
  - Pancreatic cyst [Not Recovered/Not Resolved]
  - Osteoarthritis [Not Recovered/Not Resolved]
  - Renal cyst [Not Recovered/Not Resolved]
  - Lung infiltration [Not Recovered/Not Resolved]
  - Pruritus [Recovered/Resolved]
  - Decreased activity [Not Recovered/Not Resolved]

NARRATIVE: CASE EVENT DATE: 20220619
